FAERS Safety Report 18347281 (Version 1)
Quarter: 2020Q4

REPORT INFORMATION
  Report Type: Spontaneous
  Country: BR (occurrence: BR)
  Receive Date: 20201005
  Receipt Date: 20201005
  Transmission Date: 20210114
  Serious: Yes (Life-Threatening, Hospitalization)
  Sender: FDA-Public Use
  Company Number: BR-EUSA PHARMA (UK) LIMITED-2020BR000227

PATIENT

DRUGS (2)
  1. SYLVANT [Suspect]
     Active Substance: SILTUXIMAB
     Dosage: UNK, EVERY 3 WEEKS, 2ND INFUSION
     Route: 042
     Dates: start: 20200916
  2. SYLVANT [Suspect]
     Active Substance: SILTUXIMAB
     Indication: CASTLEMAN^S DISEASE
     Dosage: UNK, EVERY 3 WEEKS, 1ST INFUSION
     Route: 042
     Dates: start: 20200821

REACTIONS (2)
  - Bronchospasm [Unknown]
  - Cyanosis [Unknown]

NARRATIVE: CASE EVENT DATE: 20200916
